FAERS Safety Report 8018020-7 (Version None)
Quarter: 2012Q1

REPORT INFORMATION
  Report Type: 
  Country: None (occurrence: None)
  Receive Date: 20120103
  Receipt Date: 20111228
  Transmission Date: 20120608
  Serious: Yes (Death)
  Sender: FDA-Public Use
  Company Number: RS-JNJFOC-20111212195

PATIENT
  Age: 46 Year
  Sex: Male

DRUGS (5)
  1. RISPERIDONE [Suspect]
     Route: 030
     Dates: start: 20090401
  2. PAROXETINE HCL [Suspect]
     Indication: SCHIZOPHRENIA
     Dosage: IN THE MORNING
     Route: 065
     Dates: start: 20110501
  3. RISPERIDONE [Suspect]
     Indication: SCHIZOPHRENIA
     Route: 030
     Dates: start: 20090701
  4. DIAZEPAM [Suspect]
     Indication: SCHIZOPHRENIA
     Route: 065
     Dates: start: 20110501
  5. INSULIN [Concomitant]
     Indication: TYPE 1 DIABETES MELLITUS
     Route: 065

REACTIONS (2)
  - COMPLETED SUICIDE [None]
  - DRUG INEFFECTIVE [None]
